FAERS Safety Report 5679752-9 (Version None)
Quarter: 2008Q1

REPORT INFORMATION
  Report Type: 
  Country: None (occurrence: None)
  Receive Date: 20080321
  Receipt Date: 20080305
  Transmission Date: 20080703
  Serious: Yes (Death)
  Sender: FDA-Public Use
  Company Number: GXKR2008GB02345

PATIENT
  Age: 22 Year
  Sex: Male
  Weight: 56 kg

DRUGS (1)
  1. ACETAMINOPHEN [Suspect]
     Dosage: ORAL
     Route: 048

REACTIONS (7)
  - ACUTE HEPATIC FAILURE [None]
  - CARDIAC FAILURE [None]
  - ENCEPHALOPATHY [None]
  - HEPATECTOMY [None]
  - LIVER TRANSPLANT [None]
  - LUNG INJURY [None]
  - OVERDOSE [None]
